FAERS Safety Report 25796281 (Version 1)
Quarter: 2025Q3

REPORT INFORMATION
  Report Type: Spontaneous
  Country: EU (occurrence: EU)
  Receive Date: 20250912
  Receipt Date: 20250912
  Transmission Date: 20251021
  Serious: Yes (Other)
  Sender: RANBAXY
  Company Number: None

PATIENT
  Age: 41 Year
  Sex: Female

DRUGS (5)
  1. ZOPICLONE [Suspect]
     Active Substance: ZOPICLONE
     Indication: Product used for unknown indication
     Dosage: 11.25 MILLIGRAM, DAILY, AT LEAST 11.25MG/DAY
     Route: 048
     Dates: start: 202309
  2. ACETAMINOPHEN [Suspect]
     Active Substance: ACETAMINOPHEN
     Indication: Product used for unknown indication
     Dosage: 1.5 MILLIGRAM, DAILY, AT LEAST 1.5 G/DAY
     Route: 048
     Dates: start: 202309
  3. ALPRAZOLAM [Suspect]
     Active Substance: ALPRAZOLAM
     Indication: Product used for unknown indication
     Dosage: 2 MILLIGRAM, DAILY, AT LEAST 2 MG/DAY
     Route: 048
     Dates: start: 202309
  4. CYAMEMAZINE [Suspect]
     Active Substance: CYAMEMAZINE
     Indication: Product used for unknown indication
     Dosage: 25 MILLIGRAM, DAILY, AT LEAST 25 MG/DAY
     Route: 048
     Dates: start: 202309
  5. CODEINE [Suspect]
     Active Substance: CODEINE
     Indication: Product used for unknown indication
     Dosage: 90 MILLIGRAM, DAILY, AT LEAST 90 MG/DAY
     Route: 048
     Dates: start: 202309

REACTIONS (1)
  - Drug use disorder [Not Recovered/Not Resolved]
